FAERS Safety Report 6133021-1 (Version None)
Quarter: 2009Q1

REPORT INFORMATION
  Report Type: 
  Country: None (occurrence: None)
  Receive Date: 20090324
  Receipt Date: 20090324
  Transmission Date: 20090719
  Serious: Yes (Other)
  Sender: FDA-Public Use
  Company Number: None

PATIENT
  Age: 40 Year
  Sex: Female
  Weight: 65.7716 kg

DRUGS (1)
  1. TAMIFLU [Suspect]
     Indication: INFLUENZA
     Dosage: 75 MG DAILY PO
     Route: 048
     Dates: start: 20090305, end: 20090309

REACTIONS (8)
  - ABNORMAL SENSATION IN EYE [None]
  - DIZZINESS [None]
  - EAR DISCOMFORT [None]
  - FATIGUE [None]
  - HEADACHE [None]
  - NAUSEA [None]
  - VERTIGO [None]
  - VISION BLURRED [None]
